FAERS Safety Report 6804211-7 (Version None)
Quarter: 2010Q2

REPORT INFORMATION
  Report Type: 
  Country: None (occurrence: None)
  Receive Date: 20100628
  Receipt Date: 20070126
  Transmission Date: 20101027
  Serious: No
  Sender: FDA-Public Use
  Company Number: US-PFIZER INC-2007008255

PATIENT
  Sex: Female
  Weight: 58.97 kg

DRUGS (3)
  1. DOSTINEX [Suspect]
     Indication: PROLACTINOMA
     Dosage: 2 EVERY 1 WEEKS
     Dates: start: 19960101
  2. ZOLOFT [Concomitant]
  3. LEVOXYL [Concomitant]

REACTIONS (1)
  - INSULIN-LIKE GROWTH FACTOR DECREASED [None]
